FAERS Safety Report 5939734-6 (Version None)
Quarter: 2008Q4

REPORT INFORMATION
  Report Type: 
  Country: None (occurrence: None)
  Receive Date: 20081030
  Receipt Date: 20081030
  Transmission Date: 20090506
  Serious: Yes (Hospitalization)
  Sender: FDA-Public Use
  Company Number: None

PATIENT
  Sex: Female
  Weight: 101.6057 kg

DRUGS (3)
  1. LOVENOX [Suspect]
     Indication: THROMBOSIS
     Dosage: 150MG/1ML DAILY
     Dates: start: 20080723, end: 20080727
  2. LOVENOX [Suspect]
     Indication: THROMBOSIS
     Dosage: 150MG/1ML DAILY
     Dates: start: 20080731
  3. LOVENOX [Suspect]
     Indication: THROMBOSIS
     Dosage: 150MG/1ML DAILY
     Dates: start: 20080802

REACTIONS (7)
  - CHEST PAIN [None]
  - DYSPNOEA [None]
  - HYPOAESTHESIA [None]
  - NERVE INJURY [None]
  - NONSPECIFIC REACTION [None]
  - PAIN [None]
  - PARAESTHESIA [None]
